FAERS Safety Report 8422489-3 (Version None)
Quarter: 2012Q2

REPORT INFORMATION
  Report Type: 
  Country: None (occurrence: None)
  Receive Date: 20120608
  Receipt Date: 20120529
  Transmission Date: 20120825
  Serious: Yes (Hospitalization)
  Sender: FDA-Public Use
  Company Number: GB-PFIZER INC-2012087888

PATIENT
  Age: 64 Year
  Sex: Male

DRUGS (2)
  1. ETORICOXIB [Suspect]
     Indication: OSTEOARTHRITIS
     Dosage: 90 MG, 1X/DAY
     Dates: start: 20110513, end: 20111005
  2. PIROXICAM [Suspect]
     Indication: OSTEOARTHRITIS
     Dosage: 20 MG, 1X/DAY
     Route: 048
     Dates: start: 20090122, end: 20110307

REACTIONS (1)
  - ACUTE MYOCARDIAL INFARCTION [None]
